FAERS Safety Report 15797101 (Version 1)
Quarter: 2019Q1

REPORT INFORMATION
  Report Type: Spontaneous
  Country: US (occurrence: US)
  Receive Date: 20190107
  Receipt Date: 20190107
  Transmission Date: 20190417
  Serious: Yes (Hospitalization, Disabling)
  Sender: FDA-Public Use
  Company Number: None

PATIENT
  Age: 11 Year
  Sex: Female
  Weight: 47.25 kg

DRUGS (6)
  1. HYDROXYZINE [Concomitant]
     Active Substance: HYDROXYZINE HYDROCHLORIDE
  2. CLONIDINE. [Concomitant]
     Active Substance: CLONIDINE
  3. FLUOXETINE [Concomitant]
     Active Substance: FLUOXETINE HYDROCHLORIDE
  4. MIRALAX [Suspect]
     Active Substance: POLYETHYLENE GLYCOL 3350
     Indication: CONGENITAL MEGACOLON
     Dosage: ?          QUANTITY:1 CAPFUL;?
     Route: 048
     Dates: start: 20080101, end: 20181031
  5. OLANZAPINE. [Concomitant]
     Active Substance: OLANZAPINE
  6. PROBIOTIC [Concomitant]
     Active Substance: PROBIOTICS NOS

REACTIONS (4)
  - Immunosuppression [None]
  - Psychotic disorder [None]
  - Diarrhoea [None]
  - Dysbacteriosis [None]

NARRATIVE: CASE EVENT DATE: 20180501
